FAERS Safety Report 15013690 (Version 1)
Quarter: 2018Q2

REPORT INFORMATION
  Report Type: Spontaneous
  Country: US (occurrence: US)
  Receive Date: 20180614
  Receipt Date: 20180614
  Transmission Date: 20180711
  Serious: No
  Sender: FDA-Public Use
  Company Number: US-009507513-1805USA014438

PATIENT
  Age: 34 Year
  Sex: Female

DRUGS (1)
  1. NUVARING [Suspect]
     Active Substance: ETHINYL ESTRADIOL\ETONOGESTREL
     Indication: CONTRACEPTION
     Dosage: STRENGTH 0.015/0.12 (UNITS NOT REPORTED)
     Route: 067

REACTIONS (5)
  - Night sweats [Unknown]
  - Somnolence [Unknown]
  - Device expulsion [Unknown]
  - Medical device site discomfort [Unknown]
  - Complication associated with device [Unknown]
